FAERS Safety Report 17448547 (Version 2)
Quarter: 2020Q1

REPORT INFORMATION
  Report Type: Report from Study
  Country: None (occurrence: ID)
  Receive Date: 20200224
  Receipt Date: 20200302
  Transmission Date: 20200409
  Serious: Yes (Death)
  Sender: FDA-Public Use
  Company Number: ID-ABBVIE-20K-079-3288602-00

PATIENT
  Sex: Male

DRUGS (2)
  1. OMEGA 3 [Concomitant]
     Active Substance: OMEGA-3 FATTY ACIDS
     Indication: PRODUCT USED FOR UNKNOWN INDICATION
  2. IBRUTINIB [Suspect]
     Active Substance: IBRUTINIB
     Indication: CHRONIC LYMPHOCYTIC LEUKAEMIA
     Dosage: 1 OR 2 CAPSULE, 140 MG
     Route: 048
     Dates: start: 2019, end: 201909

REACTIONS (7)
  - Leukocytosis [Unknown]
  - Herpes zoster [Recovered/Resolved]
  - Anaemia [Unknown]
  - Thrombocytopenia [Fatal]
  - Abdominal distension [Fatal]
  - Incorrect dose administered [Unknown]
  - Off label use [Unknown]
